FAERS Safety Report 9815835 (Version 2)
Quarter: 2014Q1

REPORT INFORMATION
  Report Type: Spontaneous
  Country: US (occurrence: US)
  Receive Date: 20140114
  Receipt Date: 20140127
  Transmission Date: 20141002
  Serious: Yes (Other)
  Sender: FDA-Public Use
  Company Number: US-PFIZER INC-2014006189

PATIENT
  Age: 87 Year
  Sex: Female
  Weight: 65.76 kg

DRUGS (3)
  1. TOVIAZ [Suspect]
     Indication: BLADDER DISORDER
     Dosage: 4 MG, DAILY
  2. GABAPENTIN [Concomitant]
     Indication: NEURALGIA
     Dosage: 2400 MG (3X 800 MG) DAILY
  3. ARMOUR THYROID [Concomitant]
     Indication: THYROID DISORDER
     Dosage: 0.5 MG, DAILY

REACTIONS (1)
  - Musculoskeletal disorder [Unknown]
